FAERS Safety Report 6112168-X (Version None)
Quarter: 2009Q1

REPORT INFORMATION
  Report Type: 
  Country: None (occurrence: None)
  Receive Date: 20090310
  Receipt Date: 20090225
  Transmission Date: 20090719
  Serious: No
  Sender: FDA-Public Use
  Company Number: 20096323

PATIENT
  Sex: Female

DRUGS (1)
  1. LIORESAL [Suspect]
     Dosage: 225 - 350 MCG, DAILY, INTRATHECAL
     Route: 037

REACTIONS (5)
  - CATHETER RELATED COMPLICATION [None]
  - DRUG WITHDRAWAL SYNDROME [None]
  - IATROGENIC INJURY [None]
  - INCISION SITE OEDEMA [None]
  - NO THERAPEUTIC RESPONSE [None]
